FAERS Safety Report 8352562-X (Version None)
Quarter: 2012Q2

REPORT INFORMATION
  Report Type: 
  Country: None (occurrence: None)
  Receive Date: 20120509
  Receipt Date: 20120501
  Transmission Date: 20120825
  Serious: Yes (Hospitalization)
  Sender: FDA-Public Use
  Company Number: TPA2012A02568

PATIENT
  Sex: Male

DRUGS (5)
  1. LEVEMIR [Concomitant]
  2. HUMULIN 70/30 (INSULIN HUMAN, INSULIN HUMAN INJECTION, ISOPHANE) [Concomitant]
  3. ACTOS [Suspect]
     Indication: DIABETES MELLITUS
  4. LANTUS [Concomitant]
  5. REGULAR INSULIN (INSULINJ BOVINE) [Concomitant]

REACTIONS (2)
  - THROMBOSIS [None]
  - DIABETES MELLITUS INADEQUATE CONTROL [None]
